FAERS Safety Report 6100580-4 (Version None)
Quarter: 2009Q1

REPORT INFORMATION
  Report Type: 
  Country: None (occurrence: None)
  Receive Date: 20090226
  Receipt Date: 20090218
  Transmission Date: 20090719
  Serious: Yes (Death, Hospitalization)
  Sender: FDA-Public Use
  Company Number: WAES  0804USA02799

PATIENT
  Age: 77 Year
  Sex: Male

DRUGS (2)
  1. DECADRON [Suspect]
     Dosage: PO
     Route: 048
  2. CARMUSTINE [Suspect]

REACTIONS (5)
  - ACUTE MYOCARDIAL INFARCTION [None]
  - ACUTE RESPIRATORY DISTRESS SYNDROME [None]
  - PNEUMOCYSTIS JIROVECI PNEUMONIA [None]
  - PNEUMONIA CYTOMEGALOVIRAL [None]
  - RENAL FAILURE ACUTE [None]
